FAERS Safety Report 24745323 (Version 1)
Quarter: 2024Q4

REPORT INFORMATION
  Report Type: Spontaneous
  Country: CA (occurrence: CA)
  Receive Date: 20241217
  Receipt Date: 20241217
  Transmission Date: 20250115
  Serious: Yes (Hospitalization, Other)
  Sender: TEVA
  Company Number: CA-TEVA-VS-3275407

PATIENT
  Age: 59 Year
  Sex: Female

DRUGS (46)
  1. LEFLUNOMIDE [Suspect]
     Active Substance: LEFLUNOMIDE
     Indication: Rheumatoid arthritis
     Dosage: DOSE FORM: NOT SPECIFIED
     Route: 065
  2. LEFLUNOMIDE [Suspect]
     Active Substance: LEFLUNOMIDE
     Indication: Rheumatoid arthritis
     Route: 048
  3. INDOMETHACIN [Suspect]
     Active Substance: INDOMETHACIN
     Indication: Tachycardia
     Route: 048
  4. INDOMETHACIN [Suspect]
     Active Substance: INDOMETHACIN
     Indication: Rheumatoid arthritis
     Dosage: DOSE FORM: NOT SPECIFIED
     Route: 048
  5. INDOMETHACIN [Suspect]
     Active Substance: INDOMETHACIN
     Indication: Rheumatoid arthritis
     Route: 065
  6. IBUPROFEN [Concomitant]
     Active Substance: IBUPROFEN
     Indication: Tachycardia
     Dosage: DOSE FORM: NOT SPECIFIED
  7. IBUPROFEN [Concomitant]
     Active Substance: IBUPROFEN
     Indication: Tachycardia
     Route: 048
  8. DULOXETINE [Suspect]
     Active Substance: DULOXETINE
     Indication: Tachycardia
     Dosage: DOSE FORM: CAPSULE, DELAYED RELEASE
     Route: 065
  9. DULOXETINE [Suspect]
     Active Substance: DULOXETINE
     Indication: Tachycardia
     Dosage: DOSE FORM: CAPSULE, DELAYED RELEASE?DULOXETINE HYDROCHLORIDE
     Route: 048
  10. METHOTREXATE [Concomitant]
     Active Substance: METHOTREXATE
     Indication: Rheumatoid arthritis
     Dosage: DOSE FORM: NOT SPECIFIED
     Route: 058
  11. METHOTREXATE [Concomitant]
     Active Substance: METHOTREXATE
     Indication: Rheumatoid arthritis
     Route: 048
  12. METHOTREXATE [Concomitant]
     Active Substance: METHOTREXATE
     Indication: Rheumatoid arthritis
     Route: 058
  13. ALLOPURINOL [Concomitant]
     Active Substance: ALLOPURINOL
     Indication: Rheumatoid arthritis
  14. ALLOPURINOL [Concomitant]
     Active Substance: ALLOPURINOL
     Indication: Rheumatoid arthritis
     Route: 065
  15. SYNJARDY [Concomitant]
     Active Substance: EMPAGLIFLOZIN\METFORMIN HYDROCHLORIDE
     Indication: Tachycardia
  16. JARDIANCE [Suspect]
     Active Substance: EMPAGLIFLOZIN
     Indication: Rheumatoid arthritis
     Route: 065
  17. NAPROXEN [Concomitant]
     Active Substance: NAPROXEN
     Indication: Rheumatoid arthritis
     Dosage: DOSE FORM: NOT SPECIFIED
     Route: 048
  18. DICLOFENAC [Concomitant]
     Active Substance: DICLOFENAC
     Indication: Tachycardia
     Route: 061
  19. DICLOFENAC [Concomitant]
     Active Substance: DICLOFENAC
     Indication: Tachycardia
     Dosage: DOSE FORM: NOT SPECIFIED
     Route: 048
  20. BISOPROLOL [Suspect]
     Active Substance: BISOPROLOL
     Indication: Tachycardia
     Route: 065
  21. FERROUS GLUCONATE [Concomitant]
     Active Substance: FERROUS GLUCONATE
     Indication: Tachycardia
  22. PANTOPRAZOLE SODIUM [Concomitant]
     Active Substance: PANTOPRAZOLE SODIUM
     Indication: Product used for unknown indication
  23. PANTOPRAZOLE SODIUM [Concomitant]
     Active Substance: PANTOPRAZOLE SODIUM
     Indication: Product used for unknown indication
     Route: 061
  24. METFORMIN [Suspect]
     Active Substance: METFORMIN HYDROCHLORIDE
     Indication: Rheumatoid arthritis
     Route: 065
  25. LYRICA [Concomitant]
     Active Substance: PREGABALIN
     Indication: Rheumatoid arthritis
  26. FOLIC ACID [Suspect]
     Active Substance: FOLIC ACID
     Indication: Rheumatoid arthritis
     Dosage: DOSE FORM: NOT SPECIFIED
     Route: 065
  27. PRAVACHOL [Concomitant]
     Active Substance: PRAVASTATIN SODIUM
     Indication: Tachycardia
  28. CELEBREX [Concomitant]
     Active Substance: CELECOXIB
     Indication: Tachycardia
     Route: 048
  29. CELEBREX [Concomitant]
     Active Substance: CELECOXIB
     Indication: Tachycardia
     Route: 048
  30. PERINDOPRIL [Concomitant]
     Active Substance: PERINDOPRIL
     Indication: Product used for unknown indication
  31. PERINDOPRIL [Concomitant]
     Active Substance: PERINDOPRIL
     Indication: Product used for unknown indication
     Route: 065
  32. SULFASALAZINE [Concomitant]
     Active Substance: SULFASALAZINE
     Indication: Tachycardia
     Dosage: DOSE FORM: NOT SPECIFIED
  33. TYLENOL ARTHRITIS PAIN [Concomitant]
     Active Substance: ACETAMINOPHEN
     Indication: Tachycardia
     Dosage: TYLENOL ARTHRITIS PAIN 8H
  34. TYLENOL ARTHRITIS PAIN [Concomitant]
     Active Substance: ACETAMINOPHEN
     Indication: Tachycardia
     Dosage: TYLENOL ARTHRITIS PAIN 8H
  35. TYLENOL ARTHRITIS PAIN [Concomitant]
     Active Substance: ACETAMINOPHEN
     Indication: Tachycardia
     Dosage: TYLENOL ARTHRITIS PAIN 8H
  36. TYLENOL ARTHRITIS PAIN [Concomitant]
     Active Substance: ACETAMINOPHEN
     Indication: Tachycardia
     Dosage: TYLENOL ARTHRITIS PAIN 8H
     Route: 065
  37. TYLENOL ARTHRITIS PAIN [Concomitant]
     Active Substance: ACETAMINOPHEN
     Indication: Tachycardia
     Dosage: TYLENOL ARTHRITIS PAIN 8H
     Route: 065
  38. TYLENOL ARTHRITIS PAIN [Concomitant]
     Active Substance: ACETAMINOPHEN
     Indication: Tachycardia
     Dosage: TYLENOL ARTHRITIS PAIN 8H
     Route: 065
  39. ERELZI [Suspect]
     Active Substance: ETANERCEPT-SZZS
     Indication: Rheumatoid arthritis
     Dosage: DOSE FORM: NOT SPECIFIED
     Route: 058
  40. ERELZI [Suspect]
     Active Substance: ETANERCEPT-SZZS
     Indication: Rheumatoid arthritis
     Route: 058
  41. ERELZI [Suspect]
     Active Substance: ETANERCEPT-SZZS
     Indication: Rheumatoid arthritis
     Route: 058
  42. ERELZI [Suspect]
     Active Substance: ETANERCEPT-SZZS
     Indication: Rheumatoid arthritis
     Route: 058
  43. PERINDOPRIL ARGININE [Concomitant]
     Active Substance: PERINDOPRIL ARGININE
     Indication: Rheumatoid arthritis
     Dosage: DOSE FORM: TABLET (ORALLY DISINTEGRATING)
     Route: 048
  44. PANTOPRAZOLE SODIUM [Concomitant]
     Active Substance: PANTOPRAZOLE SODIUM
     Indication: Tachycardia
  45. CYANOCOBALAMIN [Concomitant]
     Active Substance: CYANOCOBALAMIN
     Indication: Rheumatoid arthritis
  46. CYANOCOBALAMIN [Concomitant]
     Active Substance: CYANOCOBALAMIN
     Indication: Rheumatoid arthritis
     Route: 065

REACTIONS (35)
  - Arthritis [Unknown]
  - Cyst [Unknown]
  - Alanine aminotransferase increased [Unknown]
  - Psoriasis [Unknown]
  - Pyrexia [Unknown]
  - Blood uric acid increased [Unknown]
  - Oedema [Unknown]
  - Joint effusion [Unknown]
  - Condition aggravated [Unknown]
  - Wrong technique in device usage process [Unknown]
  - Incorrect dose administered [Unknown]
  - Tendonitis [Unknown]
  - Hepatic enzyme increased [Unknown]
  - Rash [Unknown]
  - Injection site warmth [Unknown]
  - Pain in extremity [Unknown]
  - Injection site pain [Unknown]
  - Pain [Unknown]
  - C-reactive protein increased [Unknown]
  - Vitamin B12 decreased [Unknown]
  - Synovial disorder [Unknown]
  - Osteoarthritis [Unknown]
  - Blood iron decreased [Unknown]
  - Drug ineffective [Unknown]
  - Arthralgia [Unknown]
  - Device issue [Unknown]
  - Synovitis [Unknown]
  - Renal disorder [Unknown]
  - Nephrolithiasis [Unknown]
  - Antinuclear antibody positive [Unknown]
  - Allergic sinusitis [Unknown]
  - Sepsis [Unknown]
  - Joint swelling [Unknown]
  - Arthropathy [Unknown]
  - Urinary tract infection [Unknown]
